FAERS Safety Report 8157667-4 (Version None)
Quarter: 2012Q1

REPORT INFORMATION
  Report Type: 
  Country: None (occurrence: None)
  Receive Date: 20120222
  Receipt Date: 20120222
  Transmission Date: 20120608
  Serious: Yes (Disabling, Other)
  Sender: FDA-Public Use
  Company Number: US-PFIZER INC-2012036644

PATIENT
  Sex: Female
  Weight: 95.238 kg

DRUGS (9)
  1. PRILOSEC [Concomitant]
     Indication: GASTROOESOPHAGEAL REFLUX DISEASE
     Dosage: 20 MG, DAILY
  2. NEURONTIN [Suspect]
     Indication: PAIN IN EXTREMITY
     Dosage: 300 MG, 2X/DAY
     Dates: start: 20081001
  3. TOPAMAX [Concomitant]
     Indication: BURNING SENSATION
  4. METOPROLOL [Concomitant]
     Dosage: 50 MG, 2X/DAY
  5. KLONOPIN [Concomitant]
     Dosage: DAILY
  6. METFORMIN [Concomitant]
     Dosage: 1000 MG, 2X/DAY
  7. TOPAMAX [Concomitant]
     Indication: PAIN IN EXTREMITY
     Dosage: 200 MG, 2X/DAY
  8. NEURONTIN [Suspect]
     Dosage: 300 MG, 5X/DAY
  9. NEURONTIN [Suspect]
     Indication: BURNING SENSATION
     Dosage: 300 MG, 6X/DAY

REACTIONS (5)
  - SPINAL DISORDER [None]
  - ABASIA [None]
  - DYSSTASIA [None]
  - PAIN IN EXTREMITY [None]
  - BURNING SENSATION [None]
